FAERS Safety Report 9949067 (Version 1)
Quarter: 2014Q1

REPORT INFORMATION
  Report Type: Spontaneous
  Country: US (occurrence: None)
  Receive Date: 20140122
  Receipt Date: 20140122
  Transmission Date: 20141002
  Serious: No
  Sender: FDA-Public Use
  Company Number: AEGR000183

PATIENT
  Age: 53 Year
  Sex: Male
  Weight: 104.8 kg

DRUGS (9)
  1. JUXTAPID (LOMITAPIDE) CAPSULE, 5MG [Suspect]
     Indication: TYPE IIA HYPERLIPIDAEMIA
     Route: 048
     Dates: start: 20131001
  2. VYTORIN (EZETIMIBE, SIMVASTATIN) [Concomitant]
  3. NIASPAN (NICOTINIC ACID) [Concomitant]
  4. OMEPRAZOLE (OMEPRAZOLE) [Suspect]
  5. NIACIN (NICOTINIC ACID) [Concomitant]
  6. WELCHOL (COLESEVELAM HYDROCHLORIDE) (625 MILLIGRAM, TABLET) (COLESEVELAM HYDROCHLORIDE) [Concomitant]
  7. ZETIA (EZETIMIBE) [Concomitant]
  8. VITAMIN D (COLECALCIFEROL) [Concomitant]
  9. ICOSAPENT (IOCSAPENT) [Concomitant]

REACTIONS (5)
  - Pollakiuria [None]
  - Nocturia [None]
  - Migraine [None]
  - Headache [None]
  - Weight decreased [None]
